FAERS Safety Report 12306277 (Version 2)
Quarter: 2016Q2

REPORT INFORMATION
  Report Type: Spontaneous
  Country: AR (occurrence: AR)
  Receive Date: 20160426
  Receipt Date: 20160505
  Transmission Date: 20160815
  Serious: Yes (Other)
  Sender: FDA-Public Use
  Company Number: PHHY2016AR056044

PATIENT
  Age: 29 Year
  Sex: Female

DRUGS (2)
  1. TEGRETOL [Suspect]
     Active Substance: CARBAMAZEPINE
     Indication: EPILEPSY
     Dosage: 1 DF (OF 200 MG), QD
     Route: 065
     Dates: end: 2006
  2. TEGRETOL [Suspect]
     Active Substance: CARBAMAZEPINE
     Dosage: 1 DF (OF 200 MG), QD
     Route: 065
     Dates: start: 2007

REACTIONS (3)
  - Seizure [Recovered/Resolved]
  - Mood altered [Unknown]
  - Coeliac disease [Recovered/Resolved]

NARRATIVE: CASE EVENT DATE: 201601
